FAERS Safety Report 21847212 (Version 2)
Quarter: 2023Q1

REPORT INFORMATION
  Report Type: Spontaneous
  Country: US (occurrence: US)
  Receive Date: 20230111
  Receipt Date: 20230213
  Transmission Date: 20230417
  Serious: Yes (Hospitalization, Other)
  Sender: FDA-Public Use
  Company Number: US-BEH-2023153865

PATIENT
  Age: 91 Year
  Sex: Female
  Weight: 51.156 kg

DRUGS (2)
  1. PRIVIGEN [Suspect]
     Active Substance: HUMAN IMMUNOGLOBULIN G
     Indication: Myasthenia gravis
     Dosage: 25 GRAM,FOR 2 DAYS EVERY MONTH
     Route: 042
     Dates: start: 20221109
  2. PRIVIGEN [Suspect]
     Active Substance: HUMAN IMMUNOGLOBULIN G
     Indication: Myasthenia gravis
     Dosage: 25 GRAM, QMT
     Route: 042
     Dates: start: 202209

REACTIONS (8)
  - Myasthenia gravis [Unknown]
  - Dysphagia [Unknown]
  - Dysarthria [Unknown]
  - Pharyngeal swelling [Unknown]
  - Dysphagia [Unknown]
  - Visual impairment [Unknown]
  - Weight decreased [Unknown]
  - Tooth extraction [Unknown]

NARRATIVE: CASE EVENT DATE: 20221227
